FAERS Safety Report 5612675-X (Version None)
Quarter: 2008Q1

REPORT INFORMATION
  Report Type: 
  Country: None (occurrence: None)
  Receive Date: 20080204
  Receipt Date: 20080130
  Transmission Date: 20080703
  Serious: Yes (Other)
  Sender: FDA-Public Use
  Company Number: IT-WYE-G00960708

PATIENT
  Age: 17 Year
  Sex: Female

DRUGS (1)
  1. LOETTE [Suspect]
     Indication: ORAL CONTRACEPTION
     Route: 048
     Dates: start: 20071101, end: 20080101

REACTIONS (3)
  - BLIGHTED OVUM [None]
  - DRUG INEFFECTIVE [None]
  - UNINTENDED PREGNANCY [None]
